FAERS Safety Report 20865687 (Version 2)
Quarter: 2022Q2

REPORT INFORMATION
  Report Type: Spontaneous
  Country: US (occurrence: US)
  Receive Date: 20220524
  Receipt Date: 20220621
  Transmission Date: 20220721
  Serious: Yes (Other)
  Sender: FDA-Public Use
  Company Number: US-BRISTOL-MYERS SQUIBB COMPANY-2022-039208

PATIENT
  Age: 76 Year
  Sex: Female
  Weight: 64.8 kg

DRUGS (1)
  1. REVLIMID [Suspect]
     Active Substance: LENALIDOMIDE
     Indication: Plasma cell myeloma
     Dosage: 14D OF A 21D CYCLE
     Route: 048
     Dates: start: 20220426

REACTIONS (5)
  - Joint swelling [Recovered/Resolved]
  - Axillary pain [Unknown]
  - Thrombosis [Unknown]
  - Back pain [Recovering/Resolving]
  - Breast pain [Recovering/Resolving]
